FAERS Safety Report 12763910 (Version 1)
Quarter: 2016Q3

REPORT INFORMATION
  Report Type: Spontaneous
  Country: GB (occurrence: GB)
  Receive Date: 20160920
  Receipt Date: 20160920
  Transmission Date: 20161109
  Serious: Yes (Disabling, Other)
  Sender: FDA-Public Use
  Company Number: GB-009507513-1609GBR009377

PATIENT
  Age: 51 Year
  Sex: Female
  Weight: 47 kg

DRUGS (12)
  1. CALCIUM (UNSPECIFIED) [Concomitant]
     Active Substance: CALCIUM
     Dosage: WITHDRAWN
  2. MICRONOR [Concomitant]
     Active Substance: NORETHINDRONE
  3. NYTOL TABLETS [Concomitant]
  4. VITAMIN D [Concomitant]
     Active Substance: CHOLECALCIFEROL
     Dosage: WITHDRAWN
  5. ALENDRONATE SODIUM. [Suspect]
     Active Substance: ALENDRONATE SODIUM
     Indication: OSTEOPOROSIS PROPHYLAXIS
     Dosage: 70 MG, QW
     Route: 048
     Dates: start: 201509, end: 201512
  6. VALERIAN [Concomitant]
     Active Substance: VALERIAN
  7. ALCOHOL. [Concomitant]
     Active Substance: ALCOHOL
  8. ELECTROLYTES (UNSPECIFIED) [Concomitant]
     Active Substance: ELECTROLYTES NOS
  9. LOSEC (OMEPRAZOLE MAGNESIUM) [Concomitant]
     Dosage: 20 MG, UNK
  10. RIBOSE [Concomitant]
     Active Substance: DIETARY SUPPLEMENT
  11. UBIDECARENONE [Concomitant]
     Active Substance: UBIDECARENONE
  12. ZOPICLONE [Concomitant]
     Active Substance: ZOPICLONE
     Dosage: 3.75 MG, UNK

REACTIONS (4)
  - Constipation [Unknown]
  - Fatigue [Not Recovered/Not Resolved]
  - Pain in extremity [Not Recovered/Not Resolved]
  - Gastrointestinal disorder [Unknown]

NARRATIVE: CASE EVENT DATE: 201510
